FAERS Safety Report 5324424-3 (Version None)
Quarter: 2007Q2

REPORT INFORMATION
  Report Type: 
  Country: None (occurrence: None)
  Receive Date: 20070514
  Receipt Date: 20070502
  Transmission Date: 20071010
  Serious: Yes (Other)
  Sender: FDA-Public Use
  Company Number: US-PFIZER INC-2007036576

PATIENT
  Sex: Female

DRUGS (1)
  1. NEURONTIN [Suspect]
     Indication: PAIN IN EXTREMITY

REACTIONS (4)
  - GAIT DISTURBANCE [None]
  - HYPERTENSION [None]
  - NERVE INJURY [None]
  - RENAL DISORDER [None]
